FAERS Safety Report 9423482 (Version 1)
Quarter: 2013Q3

REPORT INFORMATION
  Report Type: Report from Study
  Country: JP (occurrence: JP)
  Receive Date: 20130726
  Receipt Date: 20130726
  Transmission Date: 20140515
  Serious: Yes (Other)
  Sender: FDA-Public Use
  Company Number: JP-UCBSA-092382

PATIENT
  Age: 58 Year
  Sex: Male

DRUGS (18)
  1. E KEPPRA [Suspect]
     Indication: COMPLEX PARTIAL SEIZURES
     Route: 048
     Dates: start: 20111110, end: 20111221
  2. E KEPPRA [Suspect]
     Indication: GRAND MAL CONVULSION
     Route: 048
     Dates: start: 20111110, end: 20111221
  3. E KEPPRA [Suspect]
     Indication: SIMPLE PARTIAL SEIZURES
     Route: 048
     Dates: start: 20111110, end: 20111221
  4. TOPINA [Concomitant]
     Indication: SIMPLE PARTIAL SEIZURES
     Dosage: 250 MG
     Route: 048
  5. TOPINA [Concomitant]
     Indication: GRAND MAL CONVULSION
     Dosage: 250 MG
     Route: 048
  6. TOPINA [Concomitant]
     Indication: COMPLEX PARTIAL SEIZURES
     Dosage: 250 MG
     Route: 048
  7. TEGRETOL [Concomitant]
     Indication: SIMPLE PARTIAL SEIZURES
     Dosage: 1500 MG
     Route: 048
  8. TEGRETOL [Concomitant]
     Indication: GRAND MAL CONVULSION
     Dosage: 1500 MG
     Route: 048
  9. TEGRETOL [Concomitant]
     Indication: COMPLEX PARTIAL SEIZURES
     Dosage: 1500 MG
     Route: 048
  10. MAINTATE [Concomitant]
     Dosage: 2.5 MG,
     Route: 048
     Dates: end: 20120118
  11. MAINTATE [Concomitant]
     Route: 048
     Dates: start: 20120119
  12. MICARDIS [Concomitant]
     Dosage: 40 MG
  13. CALBLOCK [Concomitant]
     Dosage: 16 MG
  14. FAMOTIDINE [Concomitant]
     Dosage: 20 MG
     Route: 048
  15. LORFENAMIN [Concomitant]
     Dosage: 50 MG
     Route: 048
  16. MYSTAN [Concomitant]
     Indication: GRAND MAL CONVULSION
     Dosage: DAILY DOSE: 30 MG
     Route: 048
  17. MYSTAN [Concomitant]
     Indication: COMPLEX PARTIAL SEIZURES
     Dosage: DAILY DOSE: 30 MG
     Route: 048
  18. MYSTAN [Concomitant]
     Indication: SIMPLE PARTIAL SEIZURES
     Dosage: DAILY DOSE: 30 MG
     Route: 048

REACTIONS (1)
  - Impulsive behaviour [Recovering/Resolving]
